FAERS Safety Report 6388185-1 (Version None)
Quarter: 2009Q3

REPORT INFORMATION
  Report Type: 
  Country: None (occurrence: None)
  Receive Date: 20090930
  Receipt Date: 20090921
  Transmission Date: 20100115
  Serious: Yes (Hospitalization)
  Sender: FDA-Public Use
  Company Number: GXKR2009IN10482

PATIENT
  Age: 10 Year
  Sex: Female
  Weight: 24 kg

DRUGS (7)
  1. ISONIAZID [Suspect]
     Indication: BONE TUBERCULOSIS
     Dosage: 150 MG
  2. TRAMADOL HCL [Suspect]
     Indication: ANALGESIA
     Dosage: 50 MG (2MG/KG), INTRAVENOUS
  3. RIFAMPICIN [Concomitant]
  4. ETHAMBUTOL (ETHAMBUTOL) [Concomitant]
  5. PYRAZINAMIDE [Concomitant]
  6. ONDANSETRON (ONADANSETRON) [Concomitant]
  7. MIDAZOLAM HCL [Concomitant]

REACTIONS (6)
  - DRUG INTERACTION [None]
  - DYSKINESIA [None]
  - GAZE PALSY [None]
  - GRAND MAL CONVULSION [None]
  - LOSS OF CONSCIOUSNESS [None]
  - SLEEP DISORDER [None]
